FAERS Safety Report 7553867-2 (Version None)
Quarter: 2011Q2

REPORT INFORMATION
  Report Type: 
  Country: None (occurrence: None)
  Receive Date: 20110617
  Receipt Date: 20110614
  Transmission Date: 20111010
  Serious: Yes (Hospitalization, Other)
  Sender: FDA-Public Use
  Company Number: NL-PFIZER INC-2011131867

PATIENT
  Age: 68 Year
  Sex: Male
  Weight: 81 kg

DRUGS (1)
  1. LIPITOR [Suspect]
     Indication: PROPHYLAXIS
     Dosage: UNK
     Dates: start: 20060315

REACTIONS (1)
  - LOSS OF CONSCIOUSNESS [None]
